FAERS Safety Report 5225776-5 (Version None)
Quarter: 2007Q1

REPORT INFORMATION
  Report Type: 
  Country: None (occurrence: None)
  Receive Date: 20070201
  Receipt Date: 20070122
  Transmission Date: 20070707
  Serious: Yes (Hospitalization)
  Sender: FDA-Public Use
  Company Number: NL-JNJFOC-20070105815

PATIENT
  Sex: Male

DRUGS (6)
  1. BLINDED; INFLIXIMAB, RECOMBINANT [Suspect]
     Indication: IDIOPATHIC PULMONARY FIBROSIS
     Dosage: FREQ. 6 WEEKS
     Route: 042
  2. PLACEBO [Suspect]
     Indication: IDIOPATHIC PULMONARY FIBROSIS
     Route: 042
  3. SULFASALAZINE [Concomitant]
     Route: 048
  4. CO-CODAMOL [Concomitant]
     Route: 048
  5. ACETAMINOPHEN [Concomitant]
     Route: 048
  6. ARCOXIA [Concomitant]
     Route: 048

REACTIONS (2)
  - HEADACHE [None]
  - PHOTOPHOBIA [None]
